FAERS Safety Report 6922765-7 (Version None)
Quarter: 2010Q3

REPORT INFORMATION
  Report Type: 
  Country: None (occurrence: None)
  Receive Date: 20100813
  Receipt Date: 20100804
  Transmission Date: 20110219
  Serious: Yes (Hospitalization)
  Sender: FDA-Public Use
  Company Number: US-ASTRAZENECA-2009SE13514

PATIENT
  Age: 561 Month
  Sex: Female
  Weight: 63.5 kg

DRUGS (4)
  1. SYMBICORT [Suspect]
     Indication: ASTHMA
     Dosage: 160/4.5 MCG 1 PUFF
     Route: 055
     Dates: start: 20091101
  2. ESTRADIAL [Concomitant]
  3. PROAIR HFA [Concomitant]
  4. BENADRYL [Concomitant]

REACTIONS (3)
  - ANOSMIA [None]
  - DRUG DOSE OMISSION [None]
  - NASAL POLYPS [None]
